FAERS Safety Report 19260058 (Version 1)
Quarter: 2021Q2

REPORT INFORMATION
  Report Type: Spontaneous
  Country: FR (occurrence: FR)
  Receive Date: 20210514
  Receipt Date: 20210514
  Transmission Date: 20210717
  Serious: No
  Sender: FDA-Public Use
  Company Number: FR-JAZZ-2021-FR-002273

PATIENT

DRUGS (4)
  1. WAKIX [Concomitant]
     Active Substance: PITOLISANT HYDROCHLORIDE
  2. COVERAM [Concomitant]
     Active Substance: AMLODIPINE\PERINDOPRIL
  3. HYPERIUM [Concomitant]
     Active Substance: RILMENIDINE PHOSPHATE
  4. XYREM [Suspect]
     Active Substance: SODIUM OXYBATE
     Indication: NARCOLEPSY
     Dosage: 4.5 GRAM, QD
     Route: 048
     Dates: start: 20201125, end: 20201203

REACTIONS (4)
  - Cold sweat [Recovered/Resolved]
  - Palpitations [Recovered/Resolved]
  - Feeling abnormal [Recovered/Resolved]
  - Abdominal pain upper [Recovered/Resolved]

NARRATIVE: CASE EVENT DATE: 20201125
